FAERS Safety Report 17218426 (Version 2)
Quarter: 2020Q1

REPORT INFORMATION
  Report Type: Spontaneous
  Country: US (occurrence: US)
  Receive Date: 20191231
  Receipt Date: 20200108
  Transmission Date: 20200409
  Serious: No
  Sender: FDA-Public Use
  Company Number: US-TEVA-2019-US-1160515

PATIENT

DRUGS (1)
  1. TRAZODONE HYDROCHLORIDE. [Suspect]
     Active Substance: TRAZODONE HYDROCHLORIDE
     Indication: INSOMNIA
     Dosage: 300 MILLIGRAM DAILY;

REACTIONS (4)
  - Dizziness [Unknown]
  - Therapeutic product effect variable [Unknown]
  - Headache [Unknown]
  - Product physical issue [Unknown]

NARRATIVE: CASE EVENT DATE: 20190509
